FAERS Safety Report 6345385-4 (Version None)
Quarter: 2009Q3

REPORT INFORMATION
  Report Type: 
  Country: None (occurrence: None)
  Receive Date: 20090909
  Receipt Date: 20090717
  Transmission Date: 20100115
  Serious: No
  Sender: FDA-Public Use
  Company Number: US-TYCO HEALTHCARE/MALLINCKRODT-T200901378

PATIENT
  Age: 47 Year
  Sex: Female
  Weight: 58.957 kg

DRUGS (1)
  1. SODIUM IODIDE I 131 [Suspect]
     Dosage: UNK
     Dates: start: 20090717, end: 20090717

REACTIONS (1)
  - ARTHRALGIA [None]
